FAERS Safety Report 8251352-6 (Version None)
Quarter: 2012Q2

REPORT INFORMATION
  Report Type: 
  Country: None (occurrence: None)
  Receive Date: 20120402
  Receipt Date: 20120320
  Transmission Date: 20120825
  Serious: Yes (Other)
  Sender: FDA-Public Use
  Company Number: GB-GLAXOSMITHKLINE-B0784536A

PATIENT

DRUGS (7)
  1. AVANDIA [Suspect]
     Indication: PRODUCT USED FOR UNKNOWN INDICATION
     Route: 065
     Dates: start: 20030501, end: 20081201
  2. SIMVASTATIN [Concomitant]
     Dosage: 80MG PER DAY
  3. PAROXETINE [Concomitant]
     Route: 048
  4. SILDENAFIL [Concomitant]
     Dosage: 100MG PER DAY
  5. RAMIPRIL [Concomitant]
     Dosage: 10MG PER DAY
  6. METFORMIN HCL [Concomitant]
     Dosage: 3000MG PER DAY
  7. CLOPIDOGREL [Concomitant]
     Dosage: 75MG PER DAY

REACTIONS (7)
  - DISABILITY [None]
  - PAIN [None]
  - CARDIAC DISORDER [None]
  - AFFECTIVE DISORDER [None]
  - EMOTIONAL DISTRESS [None]
  - CORONARY ARTERY DISEASE [None]
  - GENERAL PHYSICAL HEALTH DETERIORATION [None]
